FAERS Safety Report 13354454 (Version 3)
Quarter: 2017Q2

REPORT INFORMATION
  Report Type: Spontaneous
  Country: US (occurrence: US)
  Receive Date: 20170321
  Receipt Date: 20170612
  Transmission Date: 20170830
  Serious: No
  Sender: FDA-Public Use
  Company Number: US-ASTRAZENECA-2017SE26820

PATIENT
  Age: 58 Year
  Sex: Female
  Weight: 86.2 kg

DRUGS (1)
  1. BYDUREON [Suspect]
     Active Substance: EXENATIDE
     Indication: TYPE 2 DIABETES MELLITUS
     Route: 058
     Dates: start: 201508

REACTIONS (6)
  - Drug ineffective [Unknown]
  - Product preparation error [Unknown]
  - Malaise [Unknown]
  - Product physical issue [Unknown]
  - Blood glucose fluctuation [Unknown]
  - Nausea [Unknown]

NARRATIVE: CASE EVENT DATE: 2015
